FAERS Safety Report 14084915 (Version 1)
Quarter: 2017Q4

REPORT INFORMATION
  Report Type: Report from Study
  Country: US (occurrence: US)
  Receive Date: 20171013
  Receipt Date: 20171013
  Transmission Date: 20180321
  Serious: Yes (Hospitalization)
  Sender: FDA-Public Use
  Company Number: US-BIOGEN-2012BI047269

PATIENT
  Age: 36 Year
  Sex: Female

DRUGS (1)
  1. TYSABRI [Suspect]
     Active Substance: NATALIZUMAB
     Indication: MULTIPLE SCLEROSIS
     Route: 042
     Dates: start: 20080903, end: 20121015

REACTIONS (3)
  - Breast mass [Recovered/Resolved]
  - Invasive lobular breast carcinoma [Recovered/Resolved]
  - Breast cyst [Recovered/Resolved]

NARRATIVE: CASE EVENT DATE: 20120912
